FAERS Safety Report 6114296-1 (Version None)
Quarter: 2009Q1

REPORT INFORMATION
  Report Type: 
  Country: None (occurrence: None)
  Receive Date: 20090312
  Receipt Date: 20081202
  Transmission Date: 20090719
  Serious: No
  Sender: FDA-Public Use
  Company Number: US-ABBOTT-08P-163-0490638-00

PATIENT
  Sex: Male

DRUGS (5)
  1. DEPAKOTE [Suspect]
     Indication: BIPOLAR DISORDER
     Route: 048
     Dates: start: 20040101
  2. ACIPHEX [Concomitant]
     Indication: DRUG USE FOR UNKNOWN INDICATION
  3. ZYLOPRAM [Concomitant]
     Indication: DRUG USE FOR UNKNOWN INDICATION
  4. UNNAMED PAIN MEDICATION [Concomitant]
     Indication: PAIN
  5. ZOLPIDEM TARTRATE [Concomitant]
     Indication: INSOMNIA

REACTIONS (1)
  - ALOPECIA [None]
